FAERS Safety Report 4293798-7 (Version None)
Quarter: 2004Q1

REPORT INFORMATION
  Report Type: 
  Country: None (occurrence: None)
  Receive Date: 20040212
  Receipt Date: 20031109
  Transmission Date: 20041129
  Serious: Yes (Hospitalization, Disabling, Other)
  Sender: FDA-Public Use
  Company Number: WAES 0311USA02107

PATIENT
  Age: 76 Year
  Sex: Female
  Weight: 95 kg

DRUGS (5)
  1. PEPCID [Concomitant]
     Indication: GASTROOESOPHAGEAL REFLUX DISEASE
     Route: 048
  2. HEMOCYTE [Concomitant]
     Indication: BLOOD IRON ABNORMAL
     Route: 048
  3. DYAZIDE [Concomitant]
     Indication: BLOOD PRESSURE ABNORMAL
     Route: 048
  4. VIOXX [Suspect]
     Indication: OSTEOARTHRITIS
     Route: 048
     Dates: start: 19991101, end: 20010101
  5. VIOXX [Suspect]
     Route: 048
     Dates: start: 19991101, end: 20010101

REACTIONS (2)
  - CEREBROVASCULAR ACCIDENT [None]
  - FALL [None]
